FAERS Safety Report 5143713-9 (Version None)
Quarter: 2006Q4

REPORT INFORMATION
  Report Type: 
  Country: None (occurrence: None)
  Receive Date: 20061103
  Receipt Date: 20060728
  Transmission Date: 20070319
  Serious: Yes (Other)
  Sender: FDA-Public Use
  Company Number: GB-MERCK-0608GBR00002

PATIENT
  Age: 101 Year
  Sex: Male

DRUGS (1)
  1. PROSCAR [Suspect]
     Indication: PROSTATITIS
     Route: 048
     Dates: start: 19940101, end: 20060727

REACTIONS (3)
  - BILE DUCT CANCER [None]
  - JAUNDICE [None]
  - OFF LABEL USE [None]
